FAERS Safety Report 5076666-2 (Version None)
Quarter: 2006Q3

REPORT INFORMATION
  Report Type: 
  Country: None (occurrence: None)
  Receive Date: 20060810
  Receipt Date: 20060802
  Transmission Date: 20061208
  Serious: Yes (Hospitalization)
  Sender: FDA-Public Use
  Company Number: DK-AVENTIS-200618077GDDC

PATIENT
  Age: 45 Year
  Sex: Female

DRUGS (1)
  1. DESMOPRESSIN [Suspect]
     Indication: ENURESIS
     Route: 055
     Dates: end: 20050801

REACTIONS (3)
  - CIRCULATORY COLLAPSE [None]
  - FALL [None]
  - HYPONATRAEMIA [None]
